FAERS Safety Report 24425235 (Version 1)
Quarter: 2024Q4

REPORT INFORMATION
  Report Type: Spontaneous
  Country: US (occurrence: US)
  Receive Date: 20241010
  Receipt Date: 20241010
  Transmission Date: 20250115
  Serious: No
  Sender: SANOFI AVENTIS
  Company Number: US-SA-2024SA288328

PATIENT
  Sex: Male

DRUGS (2)
  1. DUPIXENT [Suspect]
     Active Substance: DUPILUMAB
     Indication: Nasal polyps
     Dosage: 300 MG,QOW
     Route: 058
     Dates: start: 202403, end: 2024
  2. DUPIXENT [Suspect]
     Active Substance: DUPILUMAB
     Dosage: 300 QOW
     Route: 058
     Dates: start: 202408

REACTIONS (5)
  - Anosmia [Recovered/Resolved]
  - Rebound effect [Recovered/Resolved]
  - Nasal congestion [Recovered/Resolved]
  - Rhinorrhoea [Recovered/Resolved]
  - Arthralgia [Unknown]

NARRATIVE: CASE EVENT DATE: 20240101
